FAERS Safety Report 22123902 (Version 2)
Quarter: 2023Q2

REPORT INFORMATION
  Report Type: Other
  Country: PK (occurrence: None)
  Receive Date: 20230322
  Receipt Date: 20230417
  Transmission Date: 20230721
  Serious: Yes (Death)
  Sender: FDA-Public Use
  Company Number: PK-ROCHE-3313867

PATIENT
  Age: 44 Year
  Sex: Male

DRUGS (1)
  1. MABTHERA [Suspect]
     Active Substance: RITUXIMAB
     Indication: Diffuse large B-cell lymphoma
     Dosage: SOLUTION FORM
     Route: 058
     Dates: start: 20220613, end: 20220727

REACTIONS (2)
  - Platelet count decreased [Fatal]
  - Disease progression [Fatal]

NARRATIVE: CASE EVENT DATE: 20220827
